FAERS Safety Report 14794076 (Version 4)
Quarter: 2020Q3

REPORT INFORMATION
  Report Type: Spontaneous
  Country: FR (occurrence: FR)
  Receive Date: 20180423
  Receipt Date: 20200706
  Transmission Date: 20201102
  Serious: Yes (Death, Life-Threatening, Hospitalization, Other)
  Sender: FDA-Public Use
  Company Number: FR-SA-2018SA086952

PATIENT

DRUGS (11)
  1. CLOPIDOGREL BISULFATE. [Suspect]
     Active Substance: CLOPIDOGREL BISULFATE
     Indication: ANTIPLATELET THERAPY
     Dosage: UNK UNK,QD
     Route: 065
  2. OMEPRAZOLE. [Concomitant]
     Active Substance: OMEPRAZOLE
     Dosage: UNK UNK,QD
     Route: 065
  3. OFLOXACIN. [Interacting]
     Active Substance: OFLOXACIN
     Indication: URINARY TRACT INFECTION
     Dosage: UNK UNK,UNK
     Route: 065
  4. ATORVASTATIN [Concomitant]
     Active Substance: ATORVASTATIN
     Dosage: UNK UNK,QD
     Route: 065
  5. COUMADIN [Interacting]
     Active Substance: WARFARIN SODIUM
     Indication: ANTICOAGULANT THERAPY
     Dosage: OVERDOSE
     Route: 065
  6. COUMADIN [Interacting]
     Active Substance: WARFARIN SODIUM
     Indication: ANTIPLATELET THERAPY
  7. TRINITRIN [Concomitant]
     Active Substance: NITROGLYCERIN
     Dosage: UNK UNK,QD
     Route: 065
  8. PERINDOPRIL [Concomitant]
     Active Substance: PERINDOPRIL
     Dosage: UNK UNK,QD
     Route: 065
  9. BISOPROLOL [Concomitant]
     Active Substance: BISOPROLOL
     Dosage: UNK UNK,QD
     Route: 065
  10. ACETYLSALICYLIC ACID [Interacting]
     Active Substance: ASPIRIN
     Indication: ANTIPLATELET THERAPY
     Dosage: UNK UNK,UNK
     Route: 065
  11. ACETAMINOPHEN. [Concomitant]
     Active Substance: ACETAMINOPHEN
     Indication: PHARYNGITIS
     Dosage: UNK UNK,QD
     Route: 065

REACTIONS (20)
  - Blood urine present [Fatal]
  - Haematoma [Fatal]
  - Cyanosis [Unknown]
  - Intra-abdominal haemorrhage [Fatal]
  - Drug level increased [Fatal]
  - Overdose [Fatal]
  - Oropharyngeal pain [Fatal]
  - Insomnia [Fatal]
  - Haemorrhage subcutaneous [Not Recovered/Not Resolved]
  - Product administration error [Fatal]
  - Labelled drug-drug interaction medication error [Fatal]
  - Asphyxia [Fatal]
  - Anticoagulation drug level increased [Fatal]
  - International normalised ratio increased [Fatal]
  - Laryngeal haematoma [Fatal]
  - Upper airway obstruction [Fatal]
  - Pharyngitis [Fatal]
  - Ecchymosis [Fatal]
  - Dysphagia [Fatal]
  - Drug interaction [Fatal]
